FAERS Safety Report 5492893-4 (Version None)
Quarter: 2007Q4

REPORT INFORMATION
  Report Type: 
  Country: None (occurrence: None)
  Receive Date: 20071018
  Receipt Date: 20071010
  Transmission Date: 20080405
  Serious: Yes (Hospitalization, Other)
  Sender: FDA-Public Use
  Company Number: 161951USA

PATIENT
  Age: 81 Year
  Sex: Female

DRUGS (7)
  1. CLOXACILLIN SODIUM [Suspect]
     Indication: ARTHRITIS INFECTIVE
     Dosage: 2G, Q4H, PRN (2 GRAM, 1 IN 4 HR), INTRAVENOUS DRIP
     Route: 041
     Dates: start: 20070910
  2. SOLPADEINE [Concomitant]
  3. HEPARIN-FRACTION, SODIUM SALT [Concomitant]
  4. DOCUSATE [Concomitant]
  5. SENNA ALEXANDRINA [Concomitant]
  6. GLYCEROL 2.6% [Concomitant]
  7. BISACODYL [Concomitant]

REACTIONS (1)
  - HYPOKALAEMIA [None]
